FAERS Safety Report 8951195 (Version 1)
Quarter: 2012Q4

REPORT INFORMATION
  Report Type: 
  Country: FI (occurrence: FI)
  Receive Date: 20121207
  Receipt Date: 20121207
  Transmission Date: 20130627
  Serious: Yes (Other)
  Sender: FDA-Public Use
  Company Number: FI-SANOFI-AVENTIS-2012SA088314

PATIENT
  Age: 66 Year
  Sex: Female
  Weight: 64 kg

DRUGS (13)
  1. OXALIPLATIN [Suspect]
     Dosage: frequency is per chemotherapy regimen, not otherwise specified
     Route: 041
     Dates: start: 20120806, end: 20120806
  2. OXALIPLATIN [Suspect]
     Route: 041
     Dates: start: 20120820, end: 20120820
  3. OXALIPLATIN [Suspect]
     Route: 041
     Dates: start: 20120925, end: 20120925
  4. ANTINEOPLASTIC AGENTS [Suspect]
     Indication: COLON CANCER
     Dosage: frequency is every 2 weeks.
     Route: 042
     Dates: start: 20120806, end: 20120806
  5. ANTINEOPLASTIC AGENTS [Suspect]
     Indication: COLON CANCER
     Route: 042
     Dates: start: 20120820, end: 20120820
  6. FLUOROURACIL [Suspect]
     Dosage: frequency is per chemotherapy regimen, not otherwise specified
     Route: 042
     Dates: start: 20120806, end: 20120806
  7. FLUOROURACIL [Suspect]
     Route: 042
     Dates: start: 20120820, end: 20120820
  8. FLUOROURACIL [Suspect]
     Route: 042
     Dates: start: 20120926, end: 20120926
  9. SEREVENT [Concomitant]
  10. PROGYNOVA [Concomitant]
  11. IRINOTECAN [Concomitant]
     Dates: start: 20110901
  12. SIMVASTATIN [Concomitant]
  13. CALCIUM FOLINATE [Concomitant]
     Dates: start: 20120806, end: 20120821

REACTIONS (8)
  - Skin necrosis [Not Recovered/Not Resolved]
  - Eye swelling [Unknown]
  - Eye discharge [Unknown]
  - Eczema [Unknown]
  - Drug eruption [Recovering/Resolving]
  - Dermatitis [Unknown]
  - Sleep disorder [Unknown]
  - Conjunctivitis [Unknown]
